FAERS Safety Report 5957789-X (Version None)
Quarter: 2008Q4

REPORT INFORMATION
  Report Type: 
  Country: None (occurrence: None)
  Receive Date: 20081107
  Receipt Date: 20081029
  Transmission Date: 20090506
  Serious: Yes (Hospitalization)
  Sender: FDA-Public Use
  Company Number: 2008BI028757

PATIENT
  Age: 59 Year
  Sex: Female

DRUGS (5)
  1. TYSABRI [Suspect]
     Indication: MULTIPLE SCLEROSIS
     Dosage: 300 MG;QM;IV
     Route: 042
     Dates: start: 20070820, end: 20080929
  2. AVONEX [Concomitant]
  3. BETASERON [Concomitant]
  4. COPAXONE [Concomitant]
  5. METHOTREXATE [Concomitant]

REACTIONS (13)
  - APHASIA [None]
  - ARTHRALGIA [None]
  - CONDITION AGGRAVATED [None]
  - DIALYSIS [None]
  - DYSARTHRIA [None]
  - GAIT DISTURBANCE [None]
  - HEADACHE [None]
  - HYPOAESTHESIA [None]
  - MEMORY IMPAIRMENT [None]
  - MYALGIA [None]
  - NAUSEA [None]
  - PROGRESSIVE MULTIFOCAL LEUKOENCEPHALOPATHY [None]
  - SPEECH DISORDER [None]
